FAERS Safety Report 8892134 (Version 1)
Quarter: 2012Q4

REPORT INFORMATION
  Report Type: Spontaneous
  Country: US (occurrence: None)
  Receive Date: 20121031
  Receipt Date: 20121031
  Transmission Date: 20130627
  Serious: Yes (Other)
  Sender: FDA-Public Use
  Company Number: DSA_60291_2012

PATIENT

DRUGS (5)
  1. WELLBUTRIN [Suspect]
     Indication: PRODUCT USED FOR UNKNOWN INDICATION
  2. LAMICTAL [Suspect]
  3. TEGRETOL [Suspect]
  4. SEROQUEL [Suspect]
  5. KLONOPIN [Suspect]

REACTIONS (3)
  - Bipolar disorder [None]
  - Weight increased [None]
  - Mania [None]
